FAERS Safety Report 25050691 (Version 2)
Quarter: 2025Q1

REPORT INFORMATION
  Report Type: Spontaneous
  Country: CN (occurrence: CN)
  Receive Date: 20250307
  Receipt Date: 20250320
  Transmission Date: 20250409
  Serious: Yes (Other)
  Sender: TEVA
  Company Number: CN-TEVA-VS-3304761

PATIENT
  Age: 61 Year
  Sex: Male

DRUGS (1)
  1. BENDAMUSTINE [Suspect]
     Active Substance: BENDAMUSTINE
     Indication: Mantle cell lymphoma
     Dosage: FOR INJECTION; LEO PHARMA,
     Route: 041
     Dates: start: 20250118, end: 20250119

REACTIONS (1)
  - Angina pectoris [Recovering/Resolving]

NARRATIVE: CASE EVENT DATE: 20250121
